FAERS Safety Report 17173479 (Version 1)
Quarter: 2019Q4

REPORT INFORMATION
  Report Type: Spontaneous
  Country: AU (occurrence: AU)
  Receive Date: 20191219
  Receipt Date: 20191219
  Transmission Date: 20200122
  Serious: Yes (Other)
  Sender: FDA-Public Use
  Company Number: AU-ELI_LILLY_AND_COMPANY-AU201912007253

PATIENT
  Age: 32 Year
  Sex: Female

DRUGS (1)
  1. CYMBALTA [Suspect]
     Active Substance: DULOXETINE HYDROCHLORIDE
     Indication: ANXIETY
     Dosage: UNK, UNKNOWN
     Route: 048
     Dates: start: 20180205, end: 20180213

REACTIONS (6)
  - Nasal congestion [Unknown]
  - Pharyngeal ulceration [Recovered/Resolved]
  - Gingival swelling [Recovered/Resolved]
  - Mouth ulceration [Recovered/Resolved]
  - Feeding disorder [Unknown]
  - Lip ulceration [Unknown]

NARRATIVE: CASE EVENT DATE: 20180209
